FAERS Safety Report 18467783 (Version 1)
Quarter: 2020Q4

REPORT INFORMATION
  Report Type: Spontaneous
  Country: US (occurrence: US)
  Receive Date: 20201105
  Receipt Date: 20201105
  Transmission Date: 20210114
  Serious: No
  Sender: FDA-Public Use
  Company Number: US-PFIZER INC-2020428160

PATIENT

DRUGS (1)
  1. ADVIL [Suspect]
     Active Substance: IBUPROFEN
     Dosage: UNK (TAKING 4-8 ADVIL A DAY FOR A MONTH)

REACTIONS (2)
  - Gastrooesophageal reflux disease [Unknown]
  - Product use issue [Unknown]
